FAERS Safety Report 19470931 (Version 2)
Quarter: 2021Q3

REPORT INFORMATION
  Report Type: Report from Study
  Country: US (occurrence: US)
  Receive Date: 20210628
  Receipt Date: 20210805
  Transmission Date: 20211014
  Serious: Yes (Life-Threatening, Hospitalization, Other)
  Sender: FDA-Public Use
  Company Number: US-MALLINCKRODT PHARMACEUTICALS-T202101455

PATIENT
  Sex: Male

DRUGS (1)
  1. REPOSITORY CORTICOTROPIN INJECTION [Suspect]
     Active Substance: CORTICOTROPIN
     Indication: NEPHROTIC SYNDROME
     Dosage: 80 UNITS TWICE PER WEEK
     Route: 058
     Dates: start: 201702

REACTIONS (8)
  - Dehydration [Unknown]
  - Syncope [Unknown]
  - Hypotension [Recovered/Resolved]
  - Renal disorder [Recovered/Resolved]
  - Dyspnoea [Not Recovered/Not Resolved]
  - Colitis [Unknown]
  - Cardiomegaly [Not Recovered/Not Resolved]
  - Hypertension [Recovered/Resolved]
